FAERS Safety Report 5069345-9 (Version None)
Quarter: 2006Q3

REPORT INFORMATION
  Report Type: 
  Country: None (occurrence: None)
  Receive Date: 20060803
  Receipt Date: 20060725
  Transmission Date: 20061208
  Serious: Yes (Hospitalization)
  Sender: FDA-Public Use
  Company Number: ES-JNJFOC-20060705851

PATIENT
  Age: 37 Year
  Sex: Male

DRUGS (3)
  1. ADOLONTA [Suspect]
     Indication: DRUG USE FOR UNKNOWN INDICATION
     Route: 048
  2. BUSCAPINE [Concomitant]
     Route: 065
  3. NOLOTIL [Concomitant]
     Route: 065

REACTIONS (1)
  - ILEUS PARALYTIC [None]
